FAERS Safety Report 20973502 (Version 2)
Quarter: 2022Q3

REPORT INFORMATION
  Report Type: Report from Study
  Country: IN (occurrence: IN)
  Receive Date: 20220617
  Receipt Date: 20220719
  Transmission Date: 20221027
  Serious: Yes (Other)
  Sender: FDA-Public Use
  Company Number: IN-BRISTOL-MYERS SQUIBB COMPANY-2022-059622

PATIENT
  Age: 70 Year
  Sex: Male
  Weight: 53 kg

DRUGS (4)
  1. NIVOLUMAB [Suspect]
     Active Substance: NIVOLUMAB
     Indication: Renal cell carcinoma
     Dosage: 2 WEEKLY
     Route: 042
     Dates: start: 20220228
  2. NIVOLUMAB [Suspect]
     Active Substance: NIVOLUMAB
     Route: 042
     Dates: start: 20220228
  3. NIVOLUMAB [Suspect]
     Active Substance: NIVOLUMAB
     Route: 065
  4. NIVOLUMAB [Suspect]
     Active Substance: NIVOLUMAB
     Route: 065

REACTIONS (1)
  - Pseudomembranous colitis [Unknown]
